FAERS Safety Report 8093678-5 (Version None)
Quarter: 2012Q1

REPORT INFORMATION
  Report Type: 
  Country: None (occurrence: None)
  Receive Date: 20120129
  Receipt Date: 20110929
  Transmission Date: 20120608
  Serious: No
  Sender: FDA-Public Use
  Company Number: US-ABBOTT-11P-163-0859944-00

PATIENT
  Age: 67 Year
  Sex: Female

DRUGS (18)
  1. VALIUM [Concomitant]
     Indication: SLEEP DISORDER THERAPY
  2. IRON [Concomitant]
     Indication: PRODUCT USED FOR UNKNOWN INDICATION
  3. VALIUM [Concomitant]
     Indication: ANXIETY
  4. METHOTREXATE [Concomitant]
     Indication: PRODUCT USED FOR UNKNOWN INDICATION
     Dosage: A WEEK
  5. CYANOCOBALAMIN [Concomitant]
     Indication: SUPPLEMENTATION THERAPY
     Dosage: OS
  6. MICROZIDE [Concomitant]
     Indication: SWELLING
  7. FENTANYL [Concomitant]
     Indication: ARTHRALGIA
     Dosage: PATCH
  8. ZANTAC [Concomitant]
     Indication: DYSPEPSIA
  9. PREDNISONE TAB [Concomitant]
     Indication: PRODUCT USED FOR UNKNOWN INDICATION
     Dosage: ON AND OFF WHILE ON HUMIRA
  10. HUMIRA [Suspect]
     Indication: RHEUMATOID ARTHRITIS
     Dates: start: 20050901
  11. VITAMIN D [Concomitant]
     Indication: PRODUCT USED FOR UNKNOWN INDICATION
  12. ZOLOFT [Concomitant]
     Indication: DEPRESSION
  13. LOVAZA [Concomitant]
     Indication: PRODUCT USED FOR UNKNOWN INDICATION
  14. NORCO [Concomitant]
     Indication: PAIN
     Dosage: 10/325MG DAILY
  15. SINGULAIR [Concomitant]
     Indication: PRODUCT USED FOR UNKNOWN INDICATION
  16. SOMA [Concomitant]
     Indication: MUSCLE RELAXANT THERAPY
  17. ADVAIR DISKUS 100/50 [Concomitant]
     Indication: ASTHMA
  18. METHOTREXATE [Concomitant]
     Dosage: A WEEK

REACTIONS (4)
  - INJECTION SITE REACTION [None]
  - WOUND [None]
  - INJECTION SITE PAIN [None]
  - INJECTION SITE HAEMATOMA [None]
